FAERS Safety Report 20462842 (Version 2)
Quarter: 2022Q1

REPORT INFORMATION
  Report Type: Spontaneous
  Country: GB (occurrence: GB)
  Receive Date: 20220211
  Receipt Date: 20220211
  Transmission Date: 20220423
  Serious: Yes (Other)
  Sender: FDA-Public Use
  Company Number: None

PATIENT
  Age: 104 Year
  Sex: Female
  Weight: 67 kg

DRUGS (13)
  1. DOXYCYCLINE [Suspect]
     Active Substance: DOXYCYCLINE
     Dosage: 100 MG
     Dates: start: 20220127
  2. CHLORAMPHENICOL [Concomitant]
     Active Substance: CHLORAMPHENICOL
     Dosage: UNK
     Dates: start: 20220119, end: 20220126
  3. CLOTRIMAZOLE [Concomitant]
     Active Substance: CLOTRIMAZOLE
     Dosage: APPLY TO THE AFFECTED AREA(S) TWO OR THREE TIME...
     Dates: start: 20211118, end: 20211216
  4. FERROUS FUMARATE [Concomitant]
     Active Substance: FERROUS FUMARATE
     Dosage: 15 ML, WEEKLY
     Dates: start: 20211125
  5. FOLIC ACID [Concomitant]
     Active Substance: FOLIC ACID
     Dosage: 1 DF, 1X/DAY
     Dates: start: 20211122
  6. NITROGLYCERIN [Concomitant]
     Active Substance: NITROGLYCERIN
     Dosage: UNK, AS NEEDED
     Dates: start: 20190911
  7. HYDROCORTISONE [Concomitant]
     Active Substance: HYDROCORTISONE
     Dosage: 2 DF, 2X/DAY
     Dates: start: 20220110, end: 20220117
  8. LEVOTHYROXINE [Concomitant]
     Active Substance: LEVOTHYROXINE
     Dosage: 1 DF, 1X/DAY
     Dates: start: 20210906
  9. LORAZEPAM [Concomitant]
     Active Substance: LORAZEPAM
     Indication: Agitation
     Dosage: HALF A TABLET. MAX 2MG
     Dates: start: 20200910
  10. MEMANTINE [Concomitant]
     Active Substance: MEMANTINE
     Dosage: 1 DF, 1X/DAY
     Dates: start: 20210906
  11. RISPERIDONE [Concomitant]
     Active Substance: RISPERIDONE
     Dosage: 1 DF, 1X/DAY (EACH NIGNT)
     Dates: start: 20210907
  12. SERTRALINE [Concomitant]
     Active Substance: SERTRALINE HYDROCHLORIDE
     Dosage: 1 DF, 1X/DAY
     Dates: start: 20211006
  13. ZOPICLONE [Concomitant]
     Active Substance: ZOPICLONE
     Dosage: 1 DF (TAKE ONE TABLET AT NIGHT)
     Dates: start: 20211006

REACTIONS (3)
  - Angioedema [Recovering/Resolving]
  - Oral candidiasis [Unknown]
  - Lip swelling [Unknown]

NARRATIVE: CASE EVENT DATE: 20220101
